FAERS Safety Report 24658449 (Version 2)
Quarter: 2024Q4

REPORT INFORMATION
  Report Type: Spontaneous
  Country: PL (occurrence: PL)
  Receive Date: 20241125
  Receipt Date: 20241202
  Transmission Date: 20250114
  Serious: Yes (Hospitalization, Other)
  Sender: MYLAN
  Company Number: PL-002147023-NVSC2024PL212055

PATIENT
  Age: 32 Year
  Sex: Female

DRUGS (3)
  1. OLANZAPINE [Suspect]
     Active Substance: OLANZAPINE
     Indication: Bipolar disorder
     Dosage: UNK
     Route: 065
  2. CARBAMAZEPINE [Suspect]
     Active Substance: CARBAMAZEPINE
     Indication: Bipolar disorder
     Dosage: 300 MILLIGRAM, BID (600 MG, QD, 300 MG, BID)
     Route: 065
  3. LAMOTRIGINE [Concomitant]
     Active Substance: LAMOTRIGINE
     Indication: Bipolar disorder
     Dosage: UNK
     Route: 065

REACTIONS (10)
  - Periorbital swelling [Recovering/Resolving]
  - Liver function test abnormal [Unknown]
  - Hospitalisation [Unknown]
  - Drug reaction with eosinophilia and systemic symptoms [Unknown]
  - Lymphadenopathy [Unknown]
  - Leukocytosis [Unknown]
  - Body temperature increased [Unknown]
  - Rash erythematous [Recovering/Resolving]
  - Mental disorder [Unknown]
  - Drug ineffective [Unknown]
